FAERS Safety Report 14676975 (Version 3)
Quarter: 2018Q2

REPORT INFORMATION
  Report Type: Spontaneous
  Country: US (occurrence: US)
  Receive Date: 20180324
  Receipt Date: 20180521
  Transmission Date: 20180711
  Serious: No
  Sender: FDA-Public Use
  Company Number: US-JNJFOC-20180302141

PATIENT
  Sex: Female
  Weight: 64.41 kg

DRUGS (1)
  1. NIZORAL A-D [Suspect]
     Active Substance: KETOCONAZOLE
     Indication: FUNGAL SKIN INFECTION
     Route: 061

REACTIONS (3)
  - Product use in unapproved indication [Unknown]
  - Dandruff [Recovered/Resolved]
  - Pruritus [Recovered/Resolved]
